FAERS Safety Report 5960778-2 (Version None)
Quarter: 2008Q4

REPORT INFORMATION
  Report Type: 
  Country: None (occurrence: None)
  Receive Date: 20081120
  Receipt Date: 20081110
  Transmission Date: 20090506
  Serious: Yes (Other)
  Sender: FDA-Public Use
  Company Number: PHHY2008AT28069

PATIENT
  Age: 67 Year
  Sex: Male

DRUGS (4)
  1. LESCOL [Suspect]
     Indication: HYPERLIPIDAEMIA
     Dosage: 80 MG
  2. ESOMEPRAZOLE MAGNESIUM [Interacting]
     Dosage: HIGH DOSAGE - 2 X 40 MG
  3. PHENYTOIN [Concomitant]
     Indication: EPILEPSY
     Dosage: 5 MG IN THE EVENING
  4. DIAZEPAM [Concomitant]
     Indication: EPILEPSY
     Dosage: 5 MG IN THE EVENING

REACTIONS (3)
  - DRUG INTERACTION [None]
  - PAIN [None]
  - RHABDOMYOLYSIS [None]
